FAERS Safety Report 10089007 (Version 1)
Quarter: 2014Q2

REPORT INFORMATION
  Report Type: Spontaneous
  Country: US (occurrence: None)
  Receive Date: 20140418
  Receipt Date: 20140418
  Transmission Date: 20141212
  Serious: No
  Sender: FDA-Public Use
  Company Number: None

PATIENT
  Age: 66 Year
  Sex: Female
  Weight: 83.01 kg

DRUGS (11)
  1. HALDOL [Suspect]
     Indication: SCHIZOPHRENIA
     Dates: start: 20120309, end: 20140325
  2. ZIPRASIDONE [Concomitant]
  3. ARTANE [Concomitant]
  4. ATIVAN [Concomitant]
  5. BUSPIRONE [Concomitant]
  6. LUNESTA [Concomitant]
  7. STOOL SOFTENER [Concomitant]
  8. DOCUSATE SODIUM [Concomitant]
  9. LOPRESSOR [Concomitant]
  10. LIPITOR [Concomitant]
  11. LINZESS [Concomitant]

REACTIONS (2)
  - Chest pain [None]
  - Muscle disorder [None]
